FAERS Safety Report 20224966 (Version 14)
Quarter: 2023Q1

REPORT INFORMATION
  Report Type: Spontaneous
  Country: US (occurrence: US)
  Receive Date: 20211223
  Receipt Date: 20230314
  Transmission Date: 20230417
  Serious: Yes (Hospitalization, Other)
  Sender: FDA-Public Use
  Company Number: US-AMGEN-USASP2021203630

PATIENT
  Age: 56 Year
  Sex: Female

DRUGS (17)
  1. OTEZLA [Suspect]
     Active Substance: APREMILAST
     Indication: Psoriasis
     Dosage: 30 MILLIGRAM, BID
     Route: 048
     Dates: start: 20190111, end: 20220620
  2. OTEZLA [Suspect]
     Active Substance: APREMILAST
     Indication: Psoriatic arthropathy
     Dosage: 30 MILLIGRAM, BID
     Route: 048
     Dates: start: 202206
  3. OTEZLA [Suspect]
     Active Substance: APREMILAST
     Dosage: 30 MILLIGRAM, BID
     Route: 048
  4. ACETAMINOPHEN [Concomitant]
     Active Substance: ACETAMINOPHEN
     Dosage: 160/5 ML
  5. ADVAIR HFA [Concomitant]
     Active Substance: FLUTICASONE PROPIONATE\SALMETEROL XINAFOATE
     Dosage: 250/50
     Route: 065
  6. ALBUTEROL [Concomitant]
     Active Substance: ALBUTEROL
     Dosage: 4 MILLIGRAM
     Route: 065
  7. ASPIRIN [Concomitant]
     Active Substance: ASPIRIN
     Dosage: 325 MILLIGRAM
     Route: 065
  8. CLARITIN [Concomitant]
     Active Substance: LORATADINE
     Dosage: 10 MILLIGRAM
     Route: 065
  9. DULOXETINE [Concomitant]
     Active Substance: DULOXETINE
     Dosage: 60 MILLIGRAM
     Route: 065
  10. EVOXAC [Concomitant]
     Active Substance: CEVIMELINE HYDROCHLORIDE
     Dosage: 30 MILLIGRAM
     Route: 065
  11. FISH OIL [Concomitant]
     Active Substance: FISH OIL
     Dosage: 1200 MILLIGRAM
     Route: 065
  12. FLUTICASONE [Concomitant]
     Active Substance: FLUTICASONE
     Dosage: 50 MICROGRAM
     Route: 065
  13. GINGER [Concomitant]
     Active Substance: GINGER
     Dosage: 550 MILLIGRAM
     Route: 065
  14. MELOXICAM [Concomitant]
     Active Substance: MELOXICAM
     Dosage: 7.5 MILLIGRAM
     Route: 065
  15. NADOLOL [Concomitant]
     Active Substance: NADOLOL
     Dosage: 20 MILLIGRAM
     Route: 065
  16. SIMVASTATIN [Concomitant]
     Active Substance: SIMVASTATIN
     Dosage: 80 MILLIGRAM
     Route: 065
  17. ZOCOR [Concomitant]
     Active Substance: SIMVASTATIN
     Dosage: 40 MILLIGRAM
     Route: 065

REACTIONS (8)
  - Hyperglycaemia [Not Recovered/Not Resolved]
  - Psoriatic arthropathy [Unknown]
  - Therapy non-responder [Unknown]
  - Product dose omission issue [Unknown]
  - Infection [Unknown]
  - Diarrhoea [Unknown]
  - Psoriasis [Not Recovered/Not Resolved]
  - Headache [Unknown]

NARRATIVE: CASE EVENT DATE: 20220101
